FAERS Safety Report 19419805 (Version 1)
Quarter: 2021Q2

REPORT INFORMATION
  Report Type: Spontaneous
  Country: US (occurrence: US)
  Receive Date: 20210615
  Receipt Date: 20210615
  Transmission Date: 20210717
  Serious: No
  Sender: FDA-Public Use
  Company Number: US-GW PHARMA-202106USGW02873

PATIENT

DRUGS (10)
  1. LYRICA [Concomitant]
     Active Substance: PREGABALIN
     Indication: PRODUCT USED FOR UNKNOWN INDICATION
     Dosage: UNK
     Route: 065
  2. EPIDIOLEX [Suspect]
     Active Substance: CANNABIDIOL
     Indication: LENNOX-GASTAUT SYNDROME
     Dosage: UNK (COULD NOT RECALL HER STARTING DOSE WHETHER 2019 OR 2020)
     Route: 048
  3. EPIDIOLEX [Suspect]
     Active Substance: CANNABIDIOL
     Dosage: 14.70 MG/KG/DAY, 350 MILLIGRAM, BID
     Route: 048
     Dates: start: 202005
  4. EPIDIOLEX [Suspect]
     Active Substance: CANNABIDIOL
     Dosage: 13.44 MG/KG/DAY, 320 MILLIGRAM, BID
     Route: 048
     Dates: start: 202101, end: 2021
  5. EPIDIOLEX [Suspect]
     Active Substance: CANNABIDIOL
     Dosage: 11.76 MG/KG/DAY, 280 MILLIGRAM, BID (EPIDIOLEX WAS PRESCRIBED 320 MG 2 TIMES A DAY, BUT THE PATIENT
     Route: 048
     Dates: end: 2020
  6. CLONAZEPAM. [Concomitant]
     Active Substance: CLONAZEPAM
     Indication: PRODUCT USED FOR UNKNOWN INDICATION
     Dosage: UNK
     Route: 065
  7. EPIDIOLEX [Suspect]
     Active Substance: CANNABIDIOL
     Dosage: 11.76 MG/KG/DAY, 280 MILLIGRAM, BID
     Route: 048
     Dates: start: 2021
  8. DILANTIN [Concomitant]
     Active Substance: PHENYTOIN
     Indication: PRODUCT USED FOR UNKNOWN INDICATION
     Dosage: UNK
     Route: 065
  9. OXCARBAZEPINE. [Concomitant]
     Active Substance: OXCARBAZEPINE
     Indication: PRODUCT USED FOR UNKNOWN INDICATION
     Dosage: UNK
     Route: 065
  10. TRANXENE [Concomitant]
     Active Substance: CLORAZEPATE DIPOTASSIUM
     Indication: PRODUCT USED FOR UNKNOWN INDICATION
     Dosage: UNK
     Route: 065

REACTIONS (2)
  - Intentional product use issue [Unknown]
  - Diarrhoea [Recovered/Resolved]
